FAERS Safety Report 10199677 (Version 1)
Quarter: 2014Q2

REPORT INFORMATION
  Report Type: Spontaneous
  Country: US (occurrence: US)
  Receive Date: 20140527
  Receipt Date: 20140527
  Transmission Date: 20141212
  Serious: Yes (Life-Threatening, Other)
  Sender: FDA-Public Use
  Company Number: CHPA2014US006998

PATIENT
  Sex: Male

DRUGS (4)
  1. VOLTAREN GEL [Suspect]
     Indication: OSTEOARTHRITIS
     Dosage: UNK
     Route: 061
  2. ACETYLSALICYLIC ACID [Suspect]
     Indication: CARDIOVASCULAR EVENT PROPHYLAXIS
     Dosage: 81 MG, UNK
     Route: 048
  3. ACETYLSALICYLIC ACID [Suspect]
     Indication: OFF LABEL USE
  4. LISINOPRIL [Concomitant]
     Indication: CARDIOVASCULAR EVENT PROPHYLAXIS
     Dosage: UNK

REACTIONS (2)
  - Feeling abnormal [Recovered/Resolved]
  - Diabetes mellitus [Not Recovered/Not Resolved]
